FAERS Safety Report 9194213 (Version 3)
Quarter: 2013Q4

REPORT INFORMATION
  Report Type: Spontaneous
  Country: JP (occurrence: JP)
  Receive Date: 20130327
  Receipt Date: 20131127
  Transmission Date: 20140711
  Serious: Yes (Other)
  Sender: FDA-Public Use
  Company Number: JP-OTSUKA-JP-2013-10750

PATIENT
  Age: 64 Year
  Sex: Male

DRUGS (1)
  1. PLETAAL [Suspect]
     Indication: LACUNAR INFARCTION
     Dosage: UNK
     Route: 048
     Dates: start: 2007, end: 2007

REACTIONS (1)
  - Lacunar infarction [Unknown]
